FAERS Safety Report 8886041 (Version 3)
Quarter: 2012Q4

REPORT INFORMATION
  Report Type: Report from Study
  Country: IN (occurrence: IN)
  Receive Date: 20121105
  Receipt Date: 20121206
  Transmission Date: 20130627
  Serious: Yes (Hospitalization)
  Sender: FDA-Public Use
  Company Number: IN-PFIZER INC-2012271267

PATIENT
  Age: 63 Year
  Sex: Male

DRUGS (7)
  1. CISPLATIN [Suspect]
     Indication: SQUAMOUS CELL CARCINOMA OF HEAD AND NECK
     Dosage: 30 mg/m2, 1x/day
     Route: 042
     Dates: start: 20120917
  2. P276-00 [Suspect]
     Indication: SQUAMOUS CELL CARCINOMA OF HEAD AND NECK
     Dosage: 100 mg/m2, 1x/day
     Route: 042
     Dates: start: 20120917
  3. LOSARTAN POTASSIUM W/HYDROCHLOROTHIAZIDE [Concomitant]
     Indication: HYPERTENSION
     Dosage: 50 mg + 12.5 mg
     Route: 048
     Dates: start: 201203
  4. GLIMEPIRIDE [Concomitant]
     Indication: DIABETES
     Dosage: 1 mg, UNK
     Route: 048
     Dates: start: 201110
  5. CLOPIDOGREL [Concomitant]
     Indication: PROPHYLAXIS
     Dosage: 75 mg, UNK
     Route: 048
     Dates: start: 201203
  6. ASPIRINE [Concomitant]
     Indication: PROPHYLAXIS
     Dosage: 150 mg, UNK
     Dates: start: 201203
  7. FERROUS FUMARATE/FOLIC ACID [Concomitant]
     Indication: HAEMOGLOBIN DECREASED
     Dosage: 152 mg + 1.5 mg
     Route: 048
     Dates: start: 20120925, end: 20121012

REACTIONS (1)
  - Pancytopenia [Recovered/Resolved]
